FAERS Safety Report 25179786 (Version 4)
Quarter: 2025Q2

REPORT INFORMATION
  Report Type: Spontaneous
  Country: CA (occurrence: CA)
  Receive Date: 20250409
  Receipt Date: 20250612
  Transmission Date: 20250716
  Serious: Yes (Death, Hospitalization, Other)
  Sender: PFIZER
  Company Number: CA-PFIZER INC-202500071974

PATIENT
  Age: 78 Year
  Sex: Male

DRUGS (2)
  1. EPINEPHRINE [Suspect]
     Active Substance: EPINEPHRINE
  2. CALCIUM CHLORIDE\POTASSIUM CHLORIDE\SODIUM LACTATE [Suspect]
     Active Substance: CALCIUM CHLORIDE\POTASSIUM CHLORIDE\SODIUM LACTATE

REACTIONS (7)
  - Device failure [Fatal]
  - Device power source issue [Fatal]
  - Aspiration [Fatal]
  - COVID-19 pneumonia [Fatal]
  - Critical illness [Fatal]
  - Pulmonary embolism [Fatal]
  - Respiratory arrest [Fatal]
